FAERS Safety Report 7737785-2 (Version None)
Quarter: 2011Q3

REPORT INFORMATION
  Report Type: 
  Country: None (occurrence: None)
  Receive Date: 20110908
  Receipt Date: 20110829
  Transmission Date: 20111222
  Serious: Yes (Other)
  Sender: FDA-Public Use
  Company Number: PHHY2011BR77490

PATIENT
  Age: 73 Year
  Sex: Male

DRUGS (4)
  1. DIAMICRON [Suspect]
     Dosage: UNK UKN, UNK
  2. METFORMIN HCL [Suspect]
     Dosage: UNK UKN, UNK
  3. LAMOTRIGINE [Suspect]
     Dosage: UNK UKN, UNK
  4. EXELON [Suspect]
     Dosage: 3 MG, 1 IN MORNING AND 1 IN NIGHT

REACTIONS (1)
  - RETINAL OEDEMA [None]
